FAERS Safety Report 4935846-4 (Version None)
Quarter: 2006Q1

REPORT INFORMATION
  Report Type: 
  Country: None (occurrence: None)
  Receive Date: 20060307
  Receipt Date: 20060214
  Transmission Date: 20060701
  Serious: Yes (Other)
  Sender: FDA-Public Use
  Company Number: GR-AVENTIS-200611591GDDC

PATIENT
  Age: 85 Year
  Sex: Male
  Weight: 72 kg

DRUGS (3)
  1. GLIBENCLAMIDE + METFORMIN [Suspect]
     Indication: DIABETES MELLITUS
     Dosage: DOSE: 5+800
     Route: 048
     Dates: start: 20050101
  2. METOPROLOL [Concomitant]
     Indication: HYPERTENSION
     Route: 048
  3. ENALAPRIL MALEATE [Concomitant]
     Indication: HYPERTENSION
     Route: 048

REACTIONS (1)
  - WHITE BLOOD CELL COUNT INCREASED [None]
